FAERS Safety Report 9264931 (Version 3)
Quarter: 2013Q2

REPORT INFORMATION
  Report Type: Spontaneous
  Country: IE (occurrence: IE)
  Receive Date: 20130501
  Receipt Date: 20130524
  Transmission Date: 20140414
  Serious: Yes (Other)
  Sender: FDA-Public Use
  Company Number: IE-JNJFOC-20130309016

PATIENT
  Age: 83 Year
  Sex: Male
  Weight: 86 kg

DRUGS (13)
  1. XARELTO [Suspect]
     Indication: ATRIAL FIBRILLATION
     Route: 048
     Dates: end: 20121127
  2. XARELTO [Suspect]
     Indication: ATRIAL FIBRILLATION
     Route: 048
  3. XARELTO [Suspect]
     Indication: ATRIAL FIBRILLATION
     Route: 048
     Dates: start: 20121105
  4. XARELTO [Suspect]
     Indication: CEREBROVASCULAR ACCIDENT PROPHYLAXIS
     Route: 048
  5. XARELTO [Suspect]
     Indication: CEREBROVASCULAR ACCIDENT PROPHYLAXIS
     Route: 048
     Dates: end: 20121127
  6. XARELTO [Suspect]
     Indication: CEREBROVASCULAR ACCIDENT PROPHYLAXIS
     Route: 048
     Dates: start: 20121105
  7. LANOXIN [Concomitant]
     Route: 065
  8. ASACOLON [Concomitant]
     Route: 065
  9. FEBUXOSTAT [Concomitant]
     Route: 065
  10. PROTIUM [Concomitant]
     Route: 065
  11. FRUMIL [Concomitant]
     Route: 065
  12. PROTON PUMP INHIBITORS [Concomitant]
     Route: 065
  13. WARFARIN [Concomitant]
     Route: 065
     Dates: end: 20121105

REACTIONS (2)
  - Haematuria [Recovered/Resolved]
  - Prostatic specific antigen increased [Unknown]
